FAERS Safety Report 23011012 (Version 9)
Quarter: 2024Q2

REPORT INFORMATION
  Report Type: Report from Study
  Country: US (occurrence: US)
  Receive Date: 20230929
  Receipt Date: 20240517
  Transmission Date: 20240716
  Serious: Yes (Hospitalization, Other)
  Sender: FDA-Public Use
  Company Number: US-ARGENX-2022-ARGX-US002083

PATIENT

DRUGS (5)
  1. VYVGART [Suspect]
     Active Substance: EFGARTIGIMOD ALFA-FCAB
     Indication: Myasthenia gravis
     Dosage: UNK
     Route: 042
     Dates: start: 20220627
  2. VYVGART [Suspect]
     Active Substance: EFGARTIGIMOD ALFA-FCAB
     Dosage: UNK, Q2WEEKS (EVERY OTHER WEEK)
     Route: 042
  3. PREDNISONE [Concomitant]
     Active Substance: PREDNISONE
     Indication: Product used for unknown indication
     Route: 065
  4. MESTINON [Concomitant]
     Active Substance: PYRIDOSTIGMINE BROMIDE
     Indication: Product used for unknown indication
     Route: 065
  5. HUMAN IMMUNOGLOBULIN G [Concomitant]
     Active Substance: HUMAN IMMUNOGLOBULIN G
     Indication: Product used for unknown indication
     Dosage: UNK
     Route: 065

REACTIONS (15)
  - Respiratory tract infection [Unknown]
  - Hysterectomy [Unknown]
  - Dysarthria [Not Recovered/Not Resolved]
  - Productive cough [Not Recovered/Not Resolved]
  - Eating disorder [Not Recovered/Not Resolved]
  - Dysphagia [Not Recovered/Not Resolved]
  - Myasthenia gravis [Unknown]
  - Drug effect less than expected [Unknown]
  - Intervertebral disc protrusion [Not Recovered/Not Resolved]
  - Symptom recurrence [Unknown]
  - Dysphagia [Unknown]
  - Speech disorder [Unknown]
  - Diplopia [Unknown]
  - Inappropriate schedule of product administration [Unknown]
  - Therapy interrupted [Unknown]

NARRATIVE: CASE EVENT DATE: 20230901
